FAERS Safety Report 7734900-1 (Version None)
Quarter: 2011Q3

REPORT INFORMATION
  Report Type: 
  Country: None (occurrence: None)
  Receive Date: 20110907
  Receipt Date: 20110824
  Transmission Date: 20111222
  Serious: Yes (Other)
  Sender: FDA-Public Use
  Company Number: PHHY2011BR76175

PATIENT
  Age: 84 Year
  Sex: Female

DRUGS (3)
  1. ADALAT [Concomitant]
     Dosage: 60 MG, UNK
  2. DIOVAN [Suspect]
     Indication: HYPERTENSION
     Dosage: 01 DF (160 MG)
  3. PROPAFENONE HCL [Concomitant]

REACTIONS (3)
  - BLOOD PRESSURE INCREASED [None]
  - FEMUR FRACTURE [None]
  - ACCIDENT [None]
